FAERS Safety Report 23184912 (Version 1)
Quarter: 2023Q4

REPORT INFORMATION
  Report Type: Spontaneous
  Country: ES (occurrence: ES)
  Receive Date: 20231115
  Receipt Date: 20231115
  Transmission Date: 20240110
  Serious: Yes (Hospitalization, Other)
  Sender: FDA-Public Use
  Company Number: ES-GLAXOSMITHKLINE-ESCH2023EME054944

PATIENT

DRUGS (1)
  1. IBUPROFEN [Suspect]
     Active Substance: IBUPROFEN
     Indication: Pyrexia
     Dosage: UNK

REACTIONS (11)
  - Tubulointerstitial nephritis [Unknown]
  - Hypophosphataemia [Unknown]
  - Hypouricaemia [Unknown]
  - Asthenia [Unknown]
  - Decreased appetite [Unknown]
  - Abdominal pain [Unknown]
  - Vomiting [Unknown]
  - Weight decreased [Unknown]
  - Polyuria [Unknown]
  - Normocytic anaemia [Unknown]
  - Glycosuria [Unknown]
